FAERS Safety Report 6413442-X (Version None)
Quarter: 2009Q4

REPORT INFORMATION
  Report Type: 
  Country: None (occurrence: None)
  Receive Date: 20091020
  Receipt Date: 20091007
  Transmission Date: 20100525
  Serious: Yes (Death, Life-Threatening)
  Sender: FDA-Public Use
  Company Number: 2009-03937

PATIENT
  Age: 79 Year
  Sex: Male
  Weight: 79.5 kg

DRUGS (11)
  1. VELCADE [Suspect]
     Indication: MULTIPLE MYELOMA
     Dosage: 1.3 MG/M2, UNK, INTRAVENOUS
     Route: 042
     Dates: start: 20090921, end: 20090924
  2. VELCADE [Suspect]
  3. VELCADE [Suspect]
  4. VELCADE [Suspect]
  5. DEXAMETHASONE TAB [Suspect]
     Indication: MULTIPLE MYELOMA
     Dosage: 20 MG, UNK, ORAL
     Route: 048
     Dates: start: 20090921, end: 20090925
  6. DEXAMETHASONE TAB [Suspect]
  7. DEXAMETHASONE [Suspect]
  8. DEXAMETHASONE TAB [Suspect]
  9. CORTIAZEM - SLOW RELEASE (DILTIAZEM) [Concomitant]
  10. RAMIPRIL [Concomitant]
  11. YURINEX (BUMETANIDE) [Concomitant]

REACTIONS (5)
  - ACUTE RESPIRATORY DISTRESS SYNDROME [None]
  - ATRIAL FIBRILLATION [None]
  - CARDIAC FAILURE [None]
  - HYPOTENSION [None]
  - OLIGURIA [None]
